FAERS Safety Report 24434616 (Version 1)
Quarter: 2024Q4

REPORT INFORMATION
  Report Type: Spontaneous
  Country: FR (occurrence: FR)
  Receive Date: 20241014
  Receipt Date: 20241014
  Transmission Date: 20250114
  Serious: Yes (Hospitalization)
  Sender: MYLAN
  Company Number: None

PATIENT
  Age: 39 Year
  Sex: Female

DRUGS (3)
  1. ARIXTRA [Suspect]
     Active Substance: FONDAPARINUX SODIUM
     Indication: Gastric ulcer
     Dosage: 2.5 MILLIGRAM, QD (2.5 MG/D)
     Route: 058
     Dates: start: 20240808, end: 20240830
  2. PIPERACILLIN SODIUM\TAZOBACTAM SODIUM [Suspect]
     Active Substance: PIPERACILLIN SODIUM\TAZOBACTAM SODIUM
     Indication: Klebsiella infection
     Dosage: 4 GRAM, Q6H (4 G/4 TIMES PER DAY), 1 PHARMACEUTICAL FORM
     Route: 042
     Dates: start: 20240815, end: 20240830
  3. LANSOPRAZOLE [Suspect]
     Active Substance: LANSOPRAZOLE
     Indication: Gastric ulcer
     Dosage: 15 MILLIGRAM, QD (15 MG/D)
     Route: 048
     Dates: start: 20240808, end: 20240830

REACTIONS (2)
  - Neutropenia [Recovering/Resolving]
  - Thrombocytopenia [Recovered/Resolved]

NARRATIVE: CASE EVENT DATE: 20240829
